FAERS Safety Report 6171896-0 (Version None)
Quarter: 2009Q2

REPORT INFORMATION
  Report Type: 
  Country: None (occurrence: None)
  Receive Date: 20090429
  Receipt Date: 20090422
  Transmission Date: 20091009
  Serious: Yes (Hospitalization)
  Sender: FDA-Public Use
  Company Number: DE-MERCK-0903DEU00139

PATIENT
  Age: 65 Year
  Sex: Male
  Weight: 95 kg

DRUGS (4)
  1. JANUMET [Suspect]
     Indication: TYPE 2 DIABETES MELLITUS
     Route: 048
     Dates: start: 20090225, end: 20090309
  2. ALLOPURINOL [Concomitant]
     Route: 065
  3. ETORICOXIB [Concomitant]
     Indication: POLYARTHRITIS
     Route: 048
  4. METFORMIN [Concomitant]
     Route: 048
     Dates: end: 20090224

REACTIONS (4)
  - BLOOD CHOLESTEROL INCREASED [None]
  - CARDIAC DISORDER [None]
  - CHEST DISCOMFORT [None]
  - PALPITATIONS [None]
